FAERS Safety Report 8666647 (Version 6)
Quarter: 2019Q2

REPORT INFORMATION
  Report Type: Spontaneous
  Country: US (occurrence: US)
  Receive Date: 20120716
  Receipt Date: 20190416
  Transmission Date: 20190711
  Serious: No
  Sender: FDA-Public Use
  Company Number: US-PFIZER INC-2012165694

PATIENT
  Sex: Male

DRUGS (4)
  1. VIAGRA [Interacting]
     Active Substance: SILDENAFIL CITRATE
     Dosage: 100 MG, ONCE
     Dates: start: 201207
  2. VIAGRA [Interacting]
     Active Substance: SILDENAFIL CITRATE
     Dosage: 25 MG, UNK
     Dates: start: 2012
  3. VIAGRA [Suspect]
     Active Substance: SILDENAFIL CITRATE
     Indication: ERECTILE DYSFUNCTION
     Dosage: 100 MG, AS NEEDED
     Route: 048
     Dates: start: 20120708
  4. LORTAB [Interacting]
     Active Substance: ACETAMINOPHEN\HYDROCODONE BITARTRATE
     Dosage: UNK

REACTIONS (2)
  - Drug interaction [Unknown]
  - Drug ineffective [Unknown]

NARRATIVE: CASE EVENT DATE: 2012
